FAERS Safety Report 11327016 (Version 3)
Quarter: 2015Q3

REPORT INFORMATION
  Report Type: Spontaneous
  Country: JP (occurrence: JP)
  Receive Date: 20150731
  Receipt Date: 20150904
  Transmission Date: 20151125
  Serious: Yes (Hospitalization)
  Sender: FDA-Public Use
  Company Number: PHJP2015JP012747

PATIENT
  Age: 71 Year
  Sex: Male
  Weight: 61.4 kg

DRUGS (3)
  1. VOLTAREN [Suspect]
     Active Substance: DICLOFENAC SODIUM
     Indication: PAIN
     Dosage: 75 MG, UNK
     Route: 048
     Dates: start: 20141220, end: 20150128
  2. VOLTAREN [Suspect]
     Active Substance: DICLOFENAC SODIUM
     Indication: INFLAMMATION
  3. LOXOPROFEN [Suspect]
     Active Substance: LOXOPROFEN
     Indication: PRODUCT USED FOR UNKNOWN INDICATION
     Dosage: 180 MG, UNK
     Route: 048
     Dates: start: 20141220, end: 20150128

REACTIONS (10)
  - Nephrotic syndrome [Recovered/Resolved]
  - Dyspnoea [Recovering/Resolving]
  - Protein urine present [Recovering/Resolving]
  - Generalised oedema [Recovering/Resolving]
  - Tubulointerstitial nephritis [Recovered/Resolved]
  - Acute kidney injury [Unknown]
  - Oliguria [Recovered/Resolved]
  - Blood pressure increased [Unknown]
  - Malaise [Recovering/Resolving]
  - Weight increased [Unknown]

NARRATIVE: CASE EVENT DATE: 20150128
